FAERS Safety Report 23364457 (Version 2)
Quarter: 2024Q1

REPORT INFORMATION
  Report Type: Spontaneous
  Country: BE (occurrence: BE)
  Receive Date: 20240104
  Receipt Date: 20240118
  Transmission Date: 20240410
  Serious: Yes (Other)
  Sender: FDA-Public Use
  Company Number: BE-ALKEM LABORATORIES LIMITED-BE-ALKEM-2023-16757

PATIENT
  Age: 56 Year
  Sex: Male

DRUGS (1)
  1. SILDENAFIL [Suspect]
     Active Substance: SILDENAFIL
     Indication: Product used for unknown indication
     Dosage: 100 MILLIGRAM (65 TABLETS)
     Route: 048

REACTIONS (11)
  - Suicide attempt [Unknown]
  - Renal impairment [Unknown]
  - Overdose [Unknown]
  - Toxicity to various agents [Unknown]
  - Vomiting [Unknown]
  - Vision blurred [Unknown]
  - Sinus tachycardia [Unknown]
  - C-reactive protein increased [Unknown]
  - Leukocytosis [Unknown]
  - Troponin I increased [Unknown]
  - Drug level above therapeutic [Unknown]
